FAERS Safety Report 7928191-6 (Version None)
Quarter: 2011Q4

REPORT INFORMATION
  Report Type: 
  Country: None (occurrence: None)
  Receive Date: 20111118
  Receipt Date: 20111109
  Transmission Date: 20120403
  Serious: Yes (Hospitalization)
  Sender: FDA-Public Use
  Company Number: US-JNJFOC-20111104456

PATIENT
  Sex: Female
  Weight: 77.11 kg

DRUGS (4)
  1. NAPROXEN (ALEVE) [Concomitant]
     Indication: ARTHRITIS
     Route: 048
  2. SIMPONI [Suspect]
     Indication: RHEUMATOID ARTHRITIS
     Route: 058
     Dates: start: 20100501
  3. METHYLPREDNISOLONE [Concomitant]
     Indication: ARTHRITIS
     Route: 048
  4. LEFLUNOMIDE [Concomitant]
     Indication: ARTHRITIS
     Route: 048

REACTIONS (2)
  - GALLBLADDER DISORDER [None]
  - DRUG DOSE OMISSION [None]
